FAERS Safety Report 23467951 (Version 2)
Quarter: 2024Q1

REPORT INFORMATION
  Report Type: Spontaneous
  Country: US (occurrence: None)
  Receive Date: 20240201
  Receipt Date: 20240223
  Transmission Date: 20240409
  Serious: Yes (Hospitalization)
  Sender: FDA-Public Use
  Company Number: 2024A003194

PATIENT
  Age: 29594 Day

DRUGS (6)
  1. CALQUENCE [Suspect]
     Active Substance: ACALABRUTINIB
     Indication: Chronic lymphocytic leukaemia
     Route: 048
     Dates: start: 20231214
  2. CALQUENCE [Suspect]
     Active Substance: ACALABRUTINIB
     Indication: Lymphoma
     Route: 048
     Dates: start: 20231214
  3. PANTOPRAZOLE [Concomitant]
     Active Substance: PANTOPRAZOLE
     Indication: Product used for unknown indication
  4. ENOXAPARIN [Concomitant]
     Active Substance: ENOXAPARIN
     Indication: Product used for unknown indication
  5. JANTOVEN [Concomitant]
     Active Substance: WARFARIN SODIUM
     Indication: Product used for unknown indication
  6. WARFARIN [Concomitant]
     Active Substance: WARFARIN
     Indication: Product used for unknown indication

REACTIONS (4)
  - Haemorrhage urinary tract [Unknown]
  - Oedema peripheral [Unknown]
  - Urostomy complication [Recovered/Resolved]
  - Urine odour abnormal [Unknown]

NARRATIVE: CASE EVENT DATE: 20231221
